FAERS Safety Report 5452917-7 (Version None)
Quarter: 2007Q3

REPORT INFORMATION
  Report Type: 
  Country: None (occurrence: None)
  Receive Date: 20070914
  Receipt Date: 20070904
  Transmission Date: 20080115
  Serious: Yes (Hospitalization)
  Sender: FDA-Public Use
  Company Number: B0486938A

PATIENT
  Sex: Female

DRUGS (2)
  1. LAMICTAL [Suspect]
     Indication: EPILEPSY
     Dates: start: 20021201
  2. ZARONDAN [Suspect]
     Indication: EPILEPSY
     Dates: start: 20041101

REACTIONS (5)
  - APLASTIC ANAEMIA [None]
  - BONE MARROW FAILURE [None]
  - CONVULSION [None]
  - DERMATITIS ATOPIC [None]
  - HAEMORRHAGE [None]
